FAERS Safety Report 4654306-1 (Version None)
Quarter: 2005Q2

REPORT INFORMATION
  Report Type: 
  Country: None (occurrence: None)
  Receive Date: 20050404
  Receipt Date: 20041222
  Transmission Date: 20051028
  Serious: No
  Sender: FDA-Public Use
  Company Number: USA041082603

PATIENT
  Age: 58 Year
  Sex: Female

DRUGS (4)
  1. CYMBALTA (DULOEXTINE HYDROCHLORIDE) [Suspect]
     Dosage: 90 MG
     Dates: start: 20040801, end: 20041201
  2. PREMARIN [Concomitant]
  3. FOSAMAX [Concomitant]
  4. PREVACID [Concomitant]

REACTIONS (6)
  - ACNE [None]
  - ALOPECIA [None]
  - HEART RATE INCREASED [None]
  - IRRITABILITY [None]
  - NIGHTMARE [None]
  - PRESCRIBED OVERDOSE [None]
